FAERS Safety Report 17010574 (Version 1)
Quarter: 2019Q4

REPORT INFORMATION
  Report Type: Spontaneous
  Country: US (occurrence: US)
  Receive Date: 20191108
  Receipt Date: 20191108
  Transmission Date: 20200122
  Serious: Yes (Other)
  Sender: FDA-Public Use
  Company Number: US-ASTRAZENECA-2019SF59217

PATIENT
  Age: 88 Year
  Sex: Female

DRUGS (1)
  1. NEXIUM 24HR CLEARMINIS [Suspect]
     Active Substance: ESOMEPRAZOLE MAGNESIUM
     Route: 048

REACTIONS (5)
  - Cerebrovascular accident [Unknown]
  - Intentional product use issue [Unknown]
  - Myocardial infarction [Unknown]
  - Neoplasm malignant [Unknown]
  - Lower limb fracture [Unknown]
